FAERS Safety Report 14307215 (Version 1)
Quarter: 2017Q4

REPORT INFORMATION
  Report Type: Spontaneous
  Country: NL (occurrence: NL)
  Receive Date: 20171220
  Receipt Date: 20171220
  Transmission Date: 20180321
  Serious: Yes (Other)
  Sender: FDA-Public Use
  Company Number: NL-CIPLA LTD.-2017NL23290

PATIENT

DRUGS (9)
  1. CISPLATIN. [Suspect]
     Active Substance: CISPLATIN
     Indication: METASTASES TO LIVER
     Dosage: UNK
     Route: 065
  2. PACLITAXEL. [Suspect]
     Active Substance: PACLITAXEL
     Indication: ADENOCARCINOMA
     Dosage: 135 MG/M2, ON DAY 1 EVERY 3 WEEKS FOR 6 CYCLES
     Route: 065
  3. PACLITAXEL. [Suspect]
     Active Substance: PACLITAXEL
     Dosage: UNK
     Route: 065
  4. CARBOPLATIN. [Suspect]
     Active Substance: CARBOPLATIN
     Indication: ADENOCARCINOMA
     Dosage: AUC 5 ON DAY 1 EVERY 3 WEEKS FOR 6 CYCLES
     Route: 065
  5. CISPLATIN. [Suspect]
     Active Substance: CISPLATIN
     Dosage: UNK (FOUR CYCLES)
     Route: 065
  6. ETOPOSIDE. [Suspect]
     Active Substance: ETOPOSIDE
     Indication: METASTASES TO LIVER
     Dosage: UNK (FOUR CYCLES)
     Route: 065
  7. LETROZOLE. [Concomitant]
     Active Substance: LETROZOLE
     Dosage: UNK
     Route: 065
  8. GEMCITABINE [Suspect]
     Active Substance: GEMCITABINE\GEMCITABINE HYDROCHLORIDE
     Indication: ADENOCARCINOMA
     Dosage: 800 MG/M2, ON DAY 1 AND 8 EVERY 3 WEEKS FOR 6 CYCLES
     Route: 065
  9. DOXORUBICIN HYDROCHLORIDE. [Suspect]
     Active Substance: DOXORUBICIN HYDROCHLORIDE
     Indication: DISEASE RECURRENCE
     Dosage: UNK
     Route: 065

REACTIONS (5)
  - Diabetic retinopathy [Unknown]
  - Metastases to lymph nodes [Unknown]
  - Disease recurrence [Unknown]
  - Diabetic neuropathy [Unknown]
  - Metastases to liver [Unknown]

NARRATIVE: CASE EVENT DATE: 2009
